FAERS Safety Report 26091043 (Version 1)
Quarter: 2025Q4

REPORT INFORMATION
  Report Type: Report from Study
  Country: US (occurrence: US)
  Receive Date: 20251126
  Receipt Date: 20251126
  Transmission Date: 20260118
  Serious: Yes (Death, Hospitalization, Other)
  Sender: ACADIA PHARMACEUTICALS
  Company Number: US-ACADIA PHARMACEUTICALS INC.-ACA-2025-PIM-012120

PATIENT
  Sex: Male

DRUGS (21)
  1. NUPLAZID [Suspect]
     Active Substance: PIMAVANSERIN TARTRATE
     Indication: Parkinson^s disease psychosis
     Dosage: 34 MILLIGRAM, QD
     Route: 048
  2. AMLODIPINE BESYLATE [Concomitant]
     Active Substance: AMLODIPINE BESYLATE
     Dosage: 5-10 MG
  3. ASPIRIN [Concomitant]
     Active Substance: ASPIRIN
     Dosage: L, TBE
  4. ATORVASTATIN [Concomitant]
     Active Substance: ATORVASTATIN
  5. CETIRIZINE HYDROCHLORIDE [Concomitant]
     Active Substance: CETIRIZINE HYDROCHLORIDE
  6. CARBIDOPA\LEVODOPA [Concomitant]
     Active Substance: CARBIDOPA\LEVODOPA
     Dosage: TBC
  7. CO Q 10 [UBIDECARENONE] [Concomitant]
  8. ENTACAPONE [Concomitant]
     Active Substance: ENTACAPONE
  9. GEMTESA [Concomitant]
     Active Substance: VIBEGRON
  10. GLIMEPIRIDE [Concomitant]
     Active Substance: GLIMEPIRIDE
  11. JARDIANCE [Concomitant]
     Active Substance: EMPAGLIFLOZIN
  12. LAMOTRIGINE [Concomitant]
     Active Substance: LAMOTRIGINE
  13. METHENAMINE [Concomitant]
     Active Substance: METHENAMINE
  14. METOPROLOL SUCCINATE [Concomitant]
     Active Substance: METOPROLOL SUCCINATE
     Dosage: TB2
  15. ALUMINUM HYDROXIDE\MAGNESIUM CARBONATE [Concomitant]
     Active Substance: ALUMINUM HYDROXIDE\MAGNESIUM CARBONATE
  16. REXULTI [Concomitant]
     Active Substance: BREXPIPRAZOLE
  17. STOOL SOFTENER (DOCUSATE) [Concomitant]
     Active Substance: DOCUSATE
     Dosage: 8.6-50MG
  18. TEMAZEPAM [Concomitant]
     Active Substance: TEMAZEPAM
  19. TRAVOPROST [Concomitant]
     Active Substance: TRAVOPROST
  20. TYLENOL EXTRA STRENGTH [Concomitant]
     Active Substance: ACETAMINOPHEN
  21. VITAMIN D3 [Concomitant]
     Active Substance: CHOLECALCIFEROL

REACTIONS (3)
  - Device malfunction [Fatal]
  - Intensive care [Not Recovered/Not Resolved]
  - Adverse drug reaction [Recovered/Resolved]
